FAERS Safety Report 7553368-1 (Version None)
Quarter: 2011Q2

REPORT INFORMATION
  Report Type: 
  Country: None (occurrence: None)
  Receive Date: 20110617
  Receipt Date: 20110304
  Transmission Date: 20111010
  Serious: No
  Sender: FDA-Public Use
  Company Number: A0916781A

PATIENT
  Age: 63 Year
  Sex: Male
  Weight: 69.5 kg

DRUGS (4)
  1. DEXAMETHASONE [Concomitant]
  2. PROMACTA [Suspect]
     Indication: IDIOPATHIC THROMBOCYTOPENIC PURPURA
     Dosage: 50MG PER DAY
     Route: 048
     Dates: start: 20100406, end: 20100511
  3. IMMUNE GLOBULIN INTRAVENOUS (HUMAN) [Concomitant]
  4. IMURAN [Concomitant]
     Route: 048
     Dates: start: 20100415

REACTIONS (3)
  - PLATELET COUNT INCREASED [None]
  - DRUG SPECIFIC ANTIBODY PRESENT [None]
  - DRUG INEFFECTIVE [None]
